FAERS Safety Report 6476265-1 (Version None)
Quarter: 2009Q4

REPORT INFORMATION
  Report Type: 
  Country: None (occurrence: None)
  Receive Date: 20091206
  Receipt Date: 20090302
  Transmission Date: 20100525
  Serious: No
  Sender: FDA-Public Use
  Company Number: US-AMGEN-KDL329174

PATIENT
  Sex: Female
  Weight: 64 kg

DRUGS (5)
  1. ENBREL [Suspect]
     Indication: PSORIASIS
     Route: 058
     Dates: start: 20071203
  2. ATIVAN [Concomitant]
     Dates: start: 20080226
  3. CELEXA [Concomitant]
     Dates: start: 20061013
  4. TRIAMCINOLONE [Concomitant]
     Dates: start: 20080822
  5. ZOCOR [Concomitant]
     Dates: start: 20080226

REACTIONS (5)
  - INJECTION SITE ERYTHEMA [None]
  - INJECTION SITE PAIN [None]
  - INJECTION SITE REACTION [None]
  - INJECTION SITE SWELLING [None]
  - INJECTION SITE WARMTH [None]
